FAERS Safety Report 14889553 (Version 1)
Quarter: 2018Q2

REPORT INFORMATION
  Report Type: Spontaneous
  Country: BR (occurrence: BR)
  Receive Date: 20180514
  Receipt Date: 20180514
  Transmission Date: 20180711
  Serious: Yes (Other)
  Sender: FDA-Public Use
  Company Number: BR-ABBVIE-18P-020-2210011-00

PATIENT
  Sex: Female
  Weight: 26 kg

DRUGS (4)
  1. DEPAKENE [Suspect]
     Active Substance: VALPROIC ACID
     Indication: SEIZURE
     Dosage: 3 OR 3.5 ML (REPORTER DOES NOT REMEMBER PRECISELY);SHE TOOK DEPAKENE FOR LESS THAN A MONTH
     Route: 048
  2. DEPAKOTE [Suspect]
     Active Substance: DIVALPROEX SODIUM
     Dosage: DAILY DOSE: INITIAL DOSE: 2 CAPSULES IN THE MORNING/1 CAPSULE AT NIGHT
     Route: 048
  3. ATENOLOL. [Concomitant]
     Active Substance: ATENOLOL
     Indication: TACHYCARDIA
     Dosage: 1 TABLET; STARTED WHEN SHE WAS 1 YEAR + 08 MONTHS OLD, + FINISHED THERAPY ABOUT A YEAR
     Route: 048
  4. DEPAKOTE [Suspect]
     Active Substance: DIVALPROEX SODIUM
     Indication: SEIZURE
     Dosage: DAILY DOSE: 6 CAPSULE; (3 CAPSULE IN MORNING/ NIGHT)
     Route: 048

REACTIONS (8)
  - Product taste abnormal [Unknown]
  - Drug level decreased [Unknown]
  - Vomiting [Recovered/Resolved]
  - Refusal of treatment by patient [Unknown]
  - Drug dose omission [Unknown]
  - Product use issue [Unknown]
  - Seizure [Recovering/Resolving]
  - Off label use [Unknown]
